FAERS Safety Report 14499383 (Version 1)
Quarter: 2018Q1

REPORT INFORMATION
  Report Type: Spontaneous
  Country: US (occurrence: US)
  Receive Date: 20180206
  Receipt Date: 20180206
  Transmission Date: 20180509
  Serious: No
  Sender: FDA-Public Use
  Company Number: None

PATIENT
  Sex: Male
  Weight: 126 kg

DRUGS (3)
  1. BLISTEX COMPLETE MOISTURE [Suspect]
     Active Substance: DIMETHICONE\OCTINOXATE\OXYBENZONE
     Indication: LIP DRY
     Dosage: ?          QUANTITY:1 APPLICATIONS;?
     Route: 061
     Dates: start: 20180205, end: 20180206
  2. PRILOSEC [Concomitant]
     Active Substance: OMEPRAZOLE MAGNESIUM
  3. SYNTHROID [Concomitant]
     Active Substance: LEVOTHYROXINE SODIUM

REACTIONS (2)
  - Application site pain [None]
  - Application site burn [None]

NARRATIVE: CASE EVENT DATE: 20180206
